FAERS Safety Report 13185821 (Version 1)
Quarter: 2017Q1

REPORT INFORMATION
  Report Type: Spontaneous
  Country: US (occurrence: US)
  Receive Date: 20170203
  Receipt Date: 20170203
  Transmission Date: 20170428
  Serious: Yes (Hospitalization, Other)
  Sender: FDA-Public Use
  Company Number: US-STANDARD HOMEOPATHIC COMPANY-1062733

PATIENT
  Sex: Male

DRUGS (1)
  1. BABY TEETHING (HYLAND HOMEOPATHIC) [Suspect]
     Active Substance: HOMEOPATHICS
     Indication: TEETHING
     Route: 048
     Dates: start: 2016

REACTIONS (4)
  - Rash [None]
  - Coagulopathy [None]
  - Subdural haematoma [None]
  - Seizure [None]

NARRATIVE: CASE EVENT DATE: 2016
